FAERS Safety Report 9434439 (Version 1)
Quarter: 2013Q3

REPORT INFORMATION
  Report Type: Spontaneous
  Country: US (occurrence: None)
  Receive Date: 20130731
  Receipt Date: 20130731
  Transmission Date: 20140515
  Serious: Yes (Other)
  Sender: FDA-Public Use
  Company Number: None

PATIENT
  Age: 14 Year
  Sex: Male

DRUGS (1)
  1. EXJADE [Suspect]
     Dosage: 500MG DAILY PO
     Route: 048
     Dates: start: 2012

REACTIONS (3)
  - Abdominal pain upper [None]
  - Yellow skin [None]
  - Ocular icterus [None]
